FAERS Safety Report 5883452-X (Version None)
Quarter: 2008Q3

REPORT INFORMATION
  Report Type: 
  Country: None (occurrence: None)
  Receive Date: 20080910
  Receipt Date: 20080827
  Transmission Date: 20090109
  Serious: Yes (Hospitalization)
  Sender: FDA-Public Use
  Company Number: TCI2008A04342

PATIENT
  Age: 63 Year
  Sex: Male
  Weight: 74.8 kg

DRUGS (13)
  1. AG-1749 (CODE NOT EROKEN) (LANSOPRAZOLE) (CAPSULES) [Suspect]
     Indication: PROPHYLAXIS AGAINST GASTROINTESTINAL ULCER
     Dosage: AG-1749 15 MG OR GEFARNATE 100 MG (2 IN 1 D), PER ORAL
     Route: 048
     Dates: start: 20080116
  2. PHENYTOIN [Concomitant]
  3. DEPAS (ETIZOLAM) (TABLETS) [Concomitant]
  4. CINAL(CINAL /00257901/) (GRANULATE) [Concomitant]
  5. MYSTAN (CLOBAZAM) (TABLETS) [Concomitant]
  6. OLMETEC (OLMESARTAN MEDOXOMIL) (TABLETS) [Concomitant]
  7. ALLOPURINOL [Concomitant]
  8. LIPITOR [Concomitant]
  9. TOWARAT CR (NIFFDIPINE) (TABLETS) [Concomitant]
  10. CALELOCK (AZELNIDIPINE) (TABLETS) [Concomitant]
  11. LOXOPROFEN (LOXOPROFEN) (TABLETS) [Concomitant]
  12. EPERISSER (EPERISONE HYDROCHLORIDE) (TABLETS) [Concomitant]
  13. SUMILU STICK (FELBINAC) (OINTMENT) [Concomitant]

REACTIONS (6)
  - CEREBRAL HAEMORRHAGE [None]
  - CHEST PAIN [None]
  - CONTUSION [None]
  - INJURY [None]
  - LOSS OF CONSCIOUSNESS [None]
  - ROAD TRAFFIC ACCIDENT [None]
